FAERS Safety Report 10022545 (Version 8)
Quarter: 2015Q3

REPORT INFORMATION
  Report Type: Spontaneous
  Country: US (occurrence: US)
  Receive Date: 20140319
  Receipt Date: 20150810
  Transmission Date: 20151125
  Serious: Yes (Hospitalization, Other)
  Sender: FDA-Public Use
  Company Number: US-009507513-1403USA005988

PATIENT
  Sex: Female
  Weight: 82.54 kg

DRUGS (3)
  1. FOSAMAX [Suspect]
     Active Substance: ALENDRONATE SODIUM
     Dosage: 70 MG, QW
     Route: 048
     Dates: end: 20090715
  2. ALENDRONATE SODIUM. [Suspect]
     Active Substance: ALENDRONATE SODIUM
     Indication: OSTEOPOROSIS
     Dosage: 70 MG, QW
     Route: 048
     Dates: start: 20120228, end: 20140315
  3. FOSAMAX [Suspect]
     Active Substance: ALENDRONATE SODIUM
     Indication: OSTEOPOROSIS
     Dosage: 10 MG, QD
     Route: 048
     Dates: start: 1996, end: 20090715

REACTIONS (36)
  - Type 2 diabetes mellitus [Not Recovered/Not Resolved]
  - Device dislocation [Unknown]
  - Essential hypertension [Unknown]
  - Joint arthroplasty [Unknown]
  - Surgery [Unknown]
  - Spinal disorder [Unknown]
  - Wrist fracture [Unknown]
  - Arthropathy [Unknown]
  - Joint dislocation [Unknown]
  - Femur fracture [Unknown]
  - Diabetic neuropathy [Unknown]
  - Intervertebral disc protrusion [Unknown]
  - Gastrooesophageal reflux disease [Unknown]
  - Fall [Unknown]
  - Joint arthroplasty [Unknown]
  - Device related infection [Unknown]
  - Oral surgery [Unknown]
  - Genital herpes [Unknown]
  - Foot deformity [Unknown]
  - Hand fracture [Unknown]
  - Joint swelling [Unknown]
  - Joint instability [Unknown]
  - Rheumatoid arthritis [Unknown]
  - Osteoarthritis [Not Recovered/Not Resolved]
  - Joint arthroplasty [Unknown]
  - Impaired healing [Unknown]
  - Hyperlipidaemia [Unknown]
  - Arteriosclerosis coronary artery [Unknown]
  - Glaucoma [Unknown]
  - Sleep apnoea syndrome [Unknown]
  - Road traffic accident [Unknown]
  - Pain in extremity [Unknown]
  - Fracture malunion [Unknown]
  - Device issue [Unknown]
  - Rotator cuff syndrome [Unknown]
  - Knee deformity [Unknown]

NARRATIVE: CASE EVENT DATE: 1996
